FAERS Safety Report 12926309 (Version 2)
Quarter: 2016Q4

REPORT INFORMATION
  Report Type: Report from Study
  Country: GB (occurrence: GB)
  Receive Date: 20161109
  Receipt Date: 20161209
  Transmission Date: 20170207
  Serious: Yes (Other)
  Sender: FDA-Public Use
  Company Number: GB-JNJFOC-20161008081

PATIENT
  Age: 43 Year
  Sex: Female

DRUGS (1)
  1. SIMPONI [Suspect]
     Active Substance: GOLIMUMAB
     Indication: PRODUCT USED FOR UNKNOWN INDICATION
     Route: 058
     Dates: start: 20160927

REACTIONS (19)
  - Abscess limb [Unknown]
  - Nausea [Unknown]
  - Dysgeusia [Unknown]
  - Headache [Not Recovered/Not Resolved]
  - Decreased appetite [Not Recovered/Not Resolved]
  - Depression [Not Recovered/Not Resolved]
  - Malaise [Unknown]
  - Injection site rash [Unknown]
  - Inappropriate schedule of drug administration [Recovered/Resolved]
  - Feeling drunk [Not Recovered/Not Resolved]
  - Fibromyalgia [Unknown]
  - Fatigue [Not Recovered/Not Resolved]
  - Weight increased [Unknown]
  - Rash [Unknown]
  - Visual impairment [Not Recovered/Not Resolved]
  - Skin warm [Unknown]
  - Increased appetite [Unknown]
  - Dizziness [Unknown]
  - Sensory disturbance [Unknown]

NARRATIVE: CASE EVENT DATE: 2016
